FAERS Safety Report 5667455-6 (Version None)
Quarter: 2008Q1

REPORT INFORMATION
  Report Type: 
  Country: None (occurrence: None)
  Receive Date: 20080315
  Receipt Date: 20080122
  Transmission Date: 20080703
  Serious: No
  Sender: FDA-Public Use
  Company Number: US-ABBOTT-08P-163-0434927-00

PATIENT
  Sex: Female
  Weight: 58.112 kg

DRUGS (4)
  1. HUMIRA [Suspect]
     Indication: CROHN'S DISEASE
     Route: 058
     Dates: start: 20080111, end: 20080111
  2. HUMIRA [Suspect]
     Indication: COLITIS
     Dosage: LOADING DOSE
     Route: 058
     Dates: start: 20080111, end: 20080111
  3. HUMIRA [Suspect]
  4. GABAPENTIN [Concomitant]
     Indication: COMPLEX REGIONAL PAIN SYNDROME
     Route: 048
     Dates: start: 20010101

REACTIONS (4)
  - ALOPECIA [None]
  - DRUG INEFFECTIVE [None]
  - OEDEMA PERIPHERAL [None]
  - PAIN IN EXTREMITY [None]
